FAERS Safety Report 5093482-6 (Version None)
Quarter: 2006Q3

REPORT INFORMATION
  Report Type: 
  Country: None (occurrence: None)
  Receive Date: 20060728
  Receipt Date: 20060209
  Transmission Date: 20061208
  Serious: Yes (Other)
  Sender: FDA-Public Use
  Company Number: US-JNJFOC-20060202600

PATIENT
  Age: 2 Year
  Sex: Male
  Weight: 18.1439 kg

DRUGS (2)
  1. CONCENTRATED MOTRIN INFANTS' BERRY (IBUPROFEN) DROPS [Suspect]
     Indication: PYREXIA
     Dosage: 2 DROPPERS, 1 IN 1 TOTAL
     Dates: start: 20060126, end: 20060126
  2. ACETAMINOPHEN [Suspect]
     Indication: PYREXIA
     Dosage: 160 MG, 1 IN 1 TOTAL
     Dates: start: 20060126, end: 20060126

REACTIONS (3)
  - EYELID OEDEMA [None]
  - SWELLING FACE [None]
  - URTICARIA [None]
